FAERS Safety Report 5398397-1 (Version None)
Quarter: 2007Q3

REPORT INFORMATION
  Report Type: 
  Country: None (occurrence: None)
  Receive Date: 20070726
  Receipt Date: 20070405
  Transmission Date: 20080115
  Serious: No
  Sender: FDA-Public Use
  Company Number: US-AMGEN-KDL218577

PATIENT
  Sex: Female
  Weight: 58.1 kg

DRUGS (5)
  1. PROCRIT [Suspect]
     Indication: ANAEMIA
     Dates: start: 20070301
  2. NORCO [Concomitant]
     Dates: start: 20070301
  3. TEMAZEPAM [Concomitant]
  4. CALAN [Concomitant]
  5. PRENATAL [Concomitant]

REACTIONS (5)
  - ABNORMAL DREAMS [None]
  - HEADACHE [None]
  - HYPERHIDROSIS [None]
  - NAUSEA [None]
  - PALPITATIONS [None]
